FAERS Safety Report 13113072 (Version 3)
Quarter: 2017Q1

REPORT INFORMATION
  Report Type: Spontaneous
  Country: US (occurrence: US)
  Receive Date: 20170113
  Receipt Date: 20170301
  Transmission Date: 20170428
  Serious: Yes (Hospitalization, Other)
  Sender: FDA-Public Use
  Company Number: US-SAOL THERAPEUTICS-2017SAO00043

PATIENT
  Age: 48 Year
  Sex: Female
  Weight: 68.27 kg

DRUGS (8)
  1. PAXIL [Concomitant]
     Active Substance: PAROXETINE HYDROCHLORIDE
     Indication: ANXIETY
  2. BACLOFEN. [Suspect]
     Active Substance: BACLOFEN
     Dosage: 101 ?G, \DAY
  3. BACLOFEN. [Suspect]
     Active Substance: BACLOFEN
     Indication: MULTIPLE SCLEROSIS
     Dosage: 35 ?G, \DAY
     Route: 037
     Dates: start: 2016
  4. BACLOFEN. [Suspect]
     Active Substance: BACLOFEN
     Dosage: 701 ?G, \DAY
  5. BACLOFEN. [Suspect]
     Active Substance: BACLOFEN
     Indication: MUSCLE SPASTICITY
     Dosage: 750 ?G, \DAY
     Route: 037
     Dates: end: 2016
  6. BACLOFEN. [Suspect]
     Active Substance: BACLOFEN
     Indication: MUSCLE SPASTICITY
     Dosage: 50 ?G, \DAY
     Route: 037
     Dates: start: 2010
  7. BETHANECOL [Concomitant]
  8. BACLOFEN. [Suspect]
     Active Substance: BACLOFEN
     Indication: MULTIPLE SCLEROSIS

REACTIONS (6)
  - Therapy non-responder [Unknown]
  - Fall [Unknown]
  - Medical device site discomfort [Unknown]
  - Hypotonia [Unknown]
  - Incorrect route of drug administration [Unknown]
  - Complication associated with device [Recovered/Resolved]

NARRATIVE: CASE EVENT DATE: 20100301
